FAERS Safety Report 21320581 (Version 1)
Quarter: 2022Q3

REPORT INFORMATION
  Report Type: Spontaneous
  Country: GR (occurrence: GR)
  Receive Date: 20220912
  Receipt Date: 20220912
  Transmission Date: 20221027
  Serious: Yes (Disabling, Other)
  Sender: FDA-Public Use
  Company Number: None

PATIENT
  Age: 76 Year
  Sex: Female

DRUGS (4)
  1. CLOPIDOGREL [Suspect]
     Active Substance: CLOPIDOGREL BISULFATE
     Indication: Hypertension
  2. HYDROXYCHLOROQUINE [Suspect]
     Active Substance: HYDROXYCHLOROQUINE
     Indication: Rheumatoid arthritis
  3. OLMESARTAN MEDOXOMIL [Suspect]
     Active Substance: OLMESARTAN MEDOXOMIL
     Indication: Myocardial ischaemia
  4. DENOSUMAB [Suspect]
     Active Substance: DENOSUMAB
     Indication: Osteoporosis

REACTIONS (4)
  - Muscular weakness [Recovering/Resolving]
  - Gait disturbance [Recovered/Resolved]
  - Paraparesis [Unknown]
  - Muscle atrophy [Unknown]
